FAERS Safety Report 5060542-5 (Version None)
Quarter: 2006Q3

REPORT INFORMATION
  Report Type: 
  Country: None (occurrence: None)
  Receive Date: 20060719
  Receipt Date: 20060719
  Transmission Date: 20061208
  Serious: Yes (Hospitalization)
  Sender: FDA-Public Use
  Company Number: None

PATIENT
  Age: 46 Year
  Sex: Female
  Weight: 99.7913 kg

DRUGS (2)
  1. PEG-INTRON [Suspect]
     Indication: HEPATITIS C
     Dosage: WEEKLY  SC
     Route: 058
     Dates: start: 20050501, end: 20051016
  2. RIBAVIRIN [Concomitant]

REACTIONS (1)
  - FACTOR VIII INHIBITION [None]
